FAERS Safety Report 10245148 (Version 1)
Quarter: 2014Q2

REPORT INFORMATION
  Report Type: Spontaneous
  Country: BR (occurrence: BR)
  Receive Date: 20140618
  Receipt Date: 20140618
  Transmission Date: 20141212
  Serious: Yes (Other)
  Sender: FDA-Public Use
  Company Number: BR-009507513-1406BRA004379

PATIENT
  Sex: Female

DRUGS (3)
  1. VICTRELIS [Suspect]
     Indication: HEPATITIS C
     Dosage: UNK
     Route: 048
     Dates: start: 20140128, end: 20140402
  2. PEGINTRON [Suspect]
     Indication: HEPATITIS C
     Dosage: UNK
     Route: 058
     Dates: start: 20140128, end: 20140402
  3. RIBAVIRIN [Concomitant]
     Indication: HEPATITIS C
     Dosage: UNK
     Dates: start: 20140128, end: 20140402

REACTIONS (4)
  - Aphonia [Unknown]
  - Drug ineffective [Not Recovered/Not Resolved]
  - Eye swelling [Unknown]
  - Dyspnoea [Unknown]
